FAERS Safety Report 5859973-2 (Version None)
Quarter: 2008Q3

REPORT INFORMATION
  Report Type: 
  Country: None (occurrence: None)
  Receive Date: 20080818
  Receipt Date: 20080619
  Transmission Date: 20090109
  Serious: No
  Sender: FDA-Public Use
  Company Number: WAES 0807USA03553

PATIENT
  Age: 55 Year
  Sex: Female

DRUGS (10)
  1. JANUVIA [Suspect]
     Indication: TYPE 2 DIABETES MELLITUS
     Dosage: 100 MG/DAILY/PO ; 100 MG/DAILY/PO
     Route: 048
  2. ADCO-ZOLPIDEM [Concomitant]
  3. ALPRAZOLAM [Concomitant]
  4. BUPROPION HYDROCHLORIDE [Concomitant]
  5. GLIMEPIRIDE [Concomitant]
  6. HYDROCHLOROTHIAZIDE (+) VALSARTA [Concomitant]
  7. INSULIN, BIPHASIC ISOPHANE (INJE [Concomitant]
  8. LANSOPRAZOLE [Concomitant]
  9. METFORMIN HCL [Concomitant]
  10. ROSUVASTATIN CALCIUM [Concomitant]

REACTIONS (3)
  - BLOOD GLUCOSE DECREASED [None]
  - HYPOGLYCAEMIA [None]
  - OFF LABEL USE [None]
